FAERS Safety Report 5229241-0 (Version None)
Quarter: 2007Q1

REPORT INFORMATION
  Report Type: 
  Country: None (occurrence: None)
  Receive Date: 20061201
  Receipt Date: 20060908
  Transmission Date: 20070707
  Serious: No
  Sender: FDA-Public Use
  Company Number: US200609002306

PATIENT
  Age: 72 Year
  Sex: Female

DRUGS (3)
  1. CYMBALTA [Suspect]
     Indication: NEUROPATHY PERIPHERAL
     Dosage: 30 MG, DAILY (1/D);, 60 MG, DAILY (1/D), 30 MG, DAILY (1/D)
     Dates: start: 20060801
  2. OXYCONTIN [Concomitant]
  3. WELLBUTRIN [Concomitant]

REACTIONS (1)
  - UNEVALUABLE EVENT [None]
